FAERS Safety Report 23219669 (Version 2)
Quarter: 2024Q1

REPORT INFORMATION
  Report Type: Spontaneous
  Country: US (occurrence: US)
  Receive Date: 20231122
  Receipt Date: 20240227
  Transmission Date: 20240410
  Serious: No
  Sender: FDA-Public Use
  Company Number: US-AVADEL CNS PHARMACEUTICALS, LLC-2023AVA00233

PATIENT
  Sex: Female

DRUGS (4)
  1. LUMRYZ [Suspect]
     Active Substance: SODIUM OXYBATE
     Indication: Ill-defined disorder
     Dosage: 4.5 G
     Route: 048
     Dates: start: 202309, end: 202309
  2. LUMRYZ [Suspect]
     Active Substance: SODIUM OXYBATE
     Indication: Ill-defined disorder
     Dosage: 6 G
     Route: 048
     Dates: start: 202309, end: 202309
  3. LUMRYZ [Suspect]
     Active Substance: SODIUM OXYBATE
     Indication: Ill-defined disorder
     Dosage: 7.5 G
     Route: 048
     Dates: start: 202309, end: 20230925
  4. LUMRYZ [Suspect]
     Active Substance: SODIUM OXYBATE
     Indication: Ill-defined disorder
     Dosage: 9 G
     Route: 048
     Dates: start: 20230926, end: 202310

REACTIONS (17)
  - Middle insomnia [Recovered/Resolved]
  - Anger [Not Recovered/Not Resolved]
  - Fatigue [Not Recovered/Not Resolved]
  - Helplessness [Not Recovered/Not Resolved]
  - Malaise [Not Recovered/Not Resolved]
  - Night sweats [Not Recovered/Not Resolved]
  - Temperature regulation disorder [Not Recovered/Not Resolved]
  - Feeling of body temperature change [Not Recovered/Not Resolved]
  - Performance status decreased [Unknown]
  - Dyspnoea [Recovered/Resolved]
  - Movement disorder [Recovered/Resolved]
  - Hyperhidrosis [Not Recovered/Not Resolved]
  - Muscle spasms [Recovered/Resolved]
  - Feeling drunk [Recovered/Resolved]
  - Unevaluable event [Unknown]
  - Emotional disorder [Not Recovered/Not Resolved]
  - Therapeutic product effect incomplete [Recovered/Resolved]

NARRATIVE: CASE EVENT DATE: 20230101
